FAERS Safety Report 6413261-4 (Version None)
Quarter: 2009Q4

REPORT INFORMATION
  Report Type: 
  Country: None (occurrence: None)
  Receive Date: 20091022
  Receipt Date: 20091022
  Transmission Date: 20100525
  Serious: Yes (Hospitalization)
  Sender: FDA-Public Use
  Company Number: None

PATIENT
  Age: 56 Year
  Sex: Male
  Weight: 58.514 kg

DRUGS (2)
  1. CLOZAPINE [Suspect]
     Dosage: 50MG QHS
  2. DIVALPROEX ER 1500 MG PO QHS [Suspect]
     Dosage: 1500MG QHS
     Route: 048

REACTIONS (1)
  - THROMBOCYTOPENIA [None]
